FAERS Safety Report 7189437-8 (Version None)
Quarter: 2010Q4

REPORT INFORMATION
  Report Type: 
  Country: None (occurrence: None)
  Receive Date: 20101222
  Receipt Date: 20101214
  Transmission Date: 20110411
  Serious: Yes (Other)
  Sender: FDA-Public Use
  Company Number: FR-AMGEN-FRASP2010010498

PATIENT

DRUGS (4)
  1. ENBREL [Suspect]
     Indication: RHEUMATOID ARTHRITIS
     Dosage: UNK
     Dates: start: 20080101
  2. ENBREL [Suspect]
  3. METHOTREXATE SODIUM [Suspect]
     Dosage: 20 MG, WEEKLY
     Route: 048
     Dates: end: 20100701
  4. METOJECT [Suspect]
     Dosage: 25 MG, WEEKLY
     Dates: start: 20100701, end: 20101119

REACTIONS (3)
  - CUTANEOUS VASCULITIS [None]
  - RHEUMATOID NODULE [None]
  - TENOSYNOVITIS [None]
